FAERS Safety Report 6450396-4 (Version None)
Quarter: 2009Q4

REPORT INFORMATION
  Report Type: 
  Country: None (occurrence: None)
  Receive Date: 20091123
  Receipt Date: 20091112
  Transmission Date: 20100525
  Serious: Yes (Hospitalization)
  Sender: FDA-Public Use
  Company Number: JP-BRISTOL-MYERS SQUIBB COMPANY-14747539

PATIENT
  Age: 46 Year
  Sex: Male

DRUGS (6)
  1. EFAVIRENZ [Suspect]
     Indication: HIV INFECTION
     Route: 048
     Dates: start: 20061101
  2. TRUVADA [Suspect]
     Indication: HIV INFECTION
     Dosage: FORMULATION: TABS
     Route: 048
     Dates: start: 20061101
  3. GLYCYRON [Concomitant]
  4. URSO 250 [Concomitant]
  5. EUGLUCON [Concomitant]
  6. METFORMIN HCL [Concomitant]

REACTIONS (3)
  - HYPERTENSION [None]
  - PULMONARY TUBERCULOSIS [None]
  - TUBERCULOSIS GASTROINTESTINAL [None]
